FAERS Safety Report 17055399 (Version 1)
Quarter: 2019Q4

REPORT INFORMATION
  Report Type: Spontaneous
  Country: NO (occurrence: NO)
  Receive Date: 20191120
  Receipt Date: 20191120
  Transmission Date: 20200122
  Serious: Yes (Death)
  Sender: FDA-Public Use
  Company Number: NO-MYLANLABS-2019M1112174

PATIENT
  Age: 79 Year
  Sex: Female

DRUGS (3)
  1. VERAPAMIL [Suspect]
     Active Substance: VERAPAMIL HYDROCHLORIDE
     Indication: ATRIAL FIBRILLATION
     Dosage: 120 MILLIGRAM, Q8H
     Route: 048
     Dates: start: 20190301, end: 20190303
  2. CEFTRIAXONE. [Concomitant]
     Active Substance: CEFTRIAXONE
     Indication: INFECTION
     Dosage: ONLY 1 DOSE
     Dates: start: 20190303, end: 20190303
  3. METRONIDAZOLE. [Concomitant]
     Active Substance: METRONIDAZOLE
     Dosage: 500 MILLIGRAM, Q8H
     Dates: start: 20190303, end: 20190304

REACTIONS (1)
  - Hepatic necrosis [Fatal]

NARRATIVE: CASE EVENT DATE: 20190303
